FAERS Safety Report 5030676-X (Version None)
Quarter: 2006Q2

REPORT INFORMATION
  Report Type: 
  Country: None (occurrence: None)
  Receive Date: 20060615
  Receipt Date: 20060602
  Transmission Date: 20061013
  Serious: Yes (Other)
  Sender: FDA-Public Use
  Company Number: 2006073982

PATIENT
  Age: 24 Year
  Sex: Female
  Weight: 63 kg

DRUGS (1)
  1. DILANTIN [Suspect]
     Indication: EPILEPSY
     Dosage: 300 MG (300 MG, DAILY), ORAL
     Route: 048
     Dates: start: 19801226, end: 19810105

REACTIONS (5)
  - LEUKOPENIA [None]
  - LYMPHADENOPATHY [None]
  - PHOTOSENSITIVITY REACTION [None]
  - PYREXIA [None]
  - RASH ERYTHEMATOUS [None]
